FAERS Safety Report 6963516-X (Version None)
Quarter: 2010Q3

REPORT INFORMATION
  Report Type: 
  Country: None (occurrence: None)
  Receive Date: 20100902
  Receipt Date: 20100825
  Transmission Date: 20110219
  Serious: Yes (Hospitalization)
  Sender: FDA-Public Use
  Company Number: IT-TEVA-246413ISR

PATIENT
  Sex: Male

DRUGS (3)
  1. FLUOROURACIL [Suspect]
     Indication: GASTRIC CANCER
     Route: 042
     Dates: start: 20100623, end: 20100709
  2. CALCIUM LEVOFOLINATE [Concomitant]
     Route: 042
  3. ALIZAPRIDE HYDROCHLORIDE [Concomitant]
     Route: 042

REACTIONS (2)
  - HAEMATEMESIS [None]
  - TRANSAMINASES INCREASED [None]
